FAERS Safety Report 10166127 (Version 1)
Quarter: 2014Q2

REPORT INFORMATION
  Report Type: Spontaneous
  Country: US (occurrence: US)
  Receive Date: 20140512
  Receipt Date: 20140512
  Transmission Date: 20141212
  Serious: No
  Sender: FDA-Public Use
  Company Number: US-009507513-1405USA003517

PATIENT
  Sex: Female

DRUGS (3)
  1. JANUVIA [Suspect]
     Indication: BLOOD GLUCOSE
     Dosage: 100 MG, QD
     Route: 048
  2. JANUVIA [Suspect]
     Indication: BLOOD GLUCOSE ABNORMAL
  3. PRINIVIL [Concomitant]
     Dosage: 40 MG, UNKNOWN
     Route: 048

REACTIONS (2)
  - Urticaria [Unknown]
  - Wrong technique in drug usage process [Unknown]
